FAERS Safety Report 11080684 (Version 1)
Quarter: 2015Q2

REPORT INFORMATION
  Report Type: Spontaneous
  Country: FR (occurrence: FR)
  Receive Date: 20150501
  Receipt Date: 20150501
  Transmission Date: 20150821
  Serious: Yes (Life-Threatening, Other)
  Sender: FDA-Public Use
  Company Number: FR-ELI_LILLY_AND_COMPANY-FR201504008751

PATIENT
  Age: 65 Year
  Sex: Male
  Weight: 84 kg

DRUGS (22)
  1. DEPAMIDE [Concomitant]
     Active Substance: VALPROMIDE
     Indication: MANIA
     Dosage: 300 MG, BID
     Dates: start: 20150113, end: 20150118
  2. DEPAMIDE [Concomitant]
     Active Substance: VALPROMIDE
     Dosage: 600 MG, BID
     Dates: start: 20150119, end: 20150119
  3. DEPAMIDE [Concomitant]
     Active Substance: VALPROMIDE
     Dosage: 600 MG, TID
     Dates: start: 20150120
  4. DOMPERIDONE [Concomitant]
     Active Substance: DOMPERIDONE
     Dosage: 10 MG, TID
     Dates: start: 20150114, end: 20150124
  5. WARFARINE [Concomitant]
     Active Substance: WARFARIN
     Indication: DEEP VEIN THROMBOSIS
     Dosage: 4 MG, QD
     Dates: start: 20150202, end: 20150208
  6. LOXAPAC                            /00401801/ [Suspect]
     Active Substance: LOXAPINE SUCCINATE
     Dosage: 1 DF, TID
     Route: 048
     Dates: start: 20150202, end: 20150205
  7. LERCANIDIPINE [Concomitant]
     Active Substance: LERCANIDIPINE
     Indication: HYPERTENSION
     Dosage: 20 MG, QD
     Dates: start: 20150113
  8. RIVASTIGMINE [Concomitant]
     Active Substance: RIVASTIGMINE
     Indication: PARKINSON^S DISEASE
     Dosage: 4.6 MG, QD
     Dates: start: 20150123
  9. ENOXAPARINE SODIQUE [Concomitant]
     Active Substance: ENOXAPARIN SODIUM
     Indication: PULMONARY EMBOLISM
     Dosage: 8000 UL, QD
     Dates: start: 20150202, end: 20150208
  10. ZYPREXA [Suspect]
     Active Substance: OLANZAPINE
     Indication: AGITATION
     Dosage: 10 MG, QD
     Route: 048
     Dates: start: 20150121, end: 20150127
  11. ENOXAPARINE SODIQUE [Concomitant]
     Active Substance: ENOXAPARIN SODIUM
     Indication: DEEP VEIN THROMBOSIS
     Dosage: 4000 UL, QD
     Dates: start: 20150115, end: 20150201
  12. NOCTAMIDE [Concomitant]
     Active Substance: LORMETAZEPAM
     Indication: ANXIETY
     Dosage: 2 MG, QD
  13. ROCEPHIN [Concomitant]
     Active Substance: CEFTRIAXONE SODIUM
     Indication: URINE ANALYSIS ABNORMAL
     Dosage: 1000 MG, QD
     Dates: start: 20150117
  14. LOXAPAC                            /00401801/ [Suspect]
     Active Substance: LOXAPINE SUCCINATE
     Indication: AGITATION
     Dosage: 1 DF, TID
     Route: 048
     Dates: start: 20150128, end: 20150130
  15. ZYLORIC [Concomitant]
     Active Substance: ALLOPURINOL
     Dosage: 100 MG, QD
  16. RAMIPRIL. [Concomitant]
     Active Substance: RAMIPRIL
     Indication: HYPERTENSION
     Dosage: 2.5 MG, QD
     Dates: start: 20150113, end: 20150120
  17. LEVODOPA BENSERAZIDE [Concomitant]
     Active Substance: BENSERAZIDE\LEVODOPA
     Dosage: 1 DF, TID
     Dates: start: 20150202
  18. ATARAX [Concomitant]
     Active Substance: HYDROXYZINE\HYDROXYZINE HYDROCHLORIDE
     Dosage: 25 MG, BID
     Dates: start: 20150205
  19. LEVODOPA BENSERAZIDE [Concomitant]
     Active Substance: BENSERAZIDE\LEVODOPA
     Indication: PARKINSON^S DISEASE
     Dosage: 1 DF, TID
     Dates: start: 20150113, end: 20150128
  20. ATARAX [Concomitant]
     Active Substance: HYDROXYZINE\HYDROXYZINE HYDROCHLORIDE
     Dosage: 25 MG, BID
     Dates: start: 20150118, end: 20150204
  21. WARFARINE [Concomitant]
     Active Substance: WARFARIN
     Indication: PULMONARY EMBOLISM
  22. AMCAL PARACETAMOL [Concomitant]
     Dosage: 1 G, UNKNOWN
     Dates: start: 20051130, end: 20150202

REACTIONS (5)
  - Off label use [Recovered/Resolved]
  - Deep vein thrombosis [Recovering/Resolving]
  - Neuroleptic malignant syndrome [Recovering/Resolving]
  - Pulmonary embolism [Recovering/Resolving]
  - Haematoma [Recovering/Resolving]

NARRATIVE: CASE EVENT DATE: 20150211
